FAERS Safety Report 19697174 (Version 1)
Quarter: 2021Q3

REPORT INFORMATION
  Report Type: Spontaneous
  Country: DE (occurrence: DE)
  Receive Date: 20210813
  Receipt Date: 20210813
  Transmission Date: 20211014
  Serious: Yes (Hospitalization)
  Sender: FDA-Public Use
  Company Number: DE-DRREDDYS-SPO/GER/21/0138732

PATIENT
  Age: 60 Year
  Sex: Female

DRUGS (2)
  1. LETROZOLE. [Suspect]
     Active Substance: LETROZOLE
     Indication: PRODUCT USED FOR UNKNOWN INDICATION
  2. LOSARTAN COMP. ABZ 50 MG/12,5 MG FILMTABLETTEN [Concomitant]
     Indication: PRODUCT USED FOR UNKNOWN INDICATION
     Dosage: 12.5 / 50 MG

REACTIONS (4)
  - Restlessness [Unknown]
  - Dizziness [Unknown]
  - Performance status decreased [Unknown]
  - Palpitations [Unknown]
